FAERS Safety Report 13972120 (Version 4)
Quarter: 2017Q4

REPORT INFORMATION
  Report Type: Spontaneous
  Country: US (occurrence: US)
  Receive Date: 20170914
  Receipt Date: 20171109
  Transmission Date: 20180321
  Serious: Yes (Hospitalization, Other)
  Sender: FDA-Public Use
  Company Number: US-SAOL THERAPEUTICS-0700865220

PATIENT
  Sex: Male
  Weight: 35.37 kg

DRUGS (14)
  1. MELATONIN [Concomitant]
     Active Substance: MELATONIN
  2. LIORESAL [Suspect]
     Active Substance: BACLOFEN
     Dosage: UNK
  3. FLUTICASONE. [Concomitant]
     Active Substance: FLUTICASONE
  4. BACLOFEN. [Concomitant]
     Active Substance: BACLOFEN
     Route: 048
  5. CLONIDINE. [Concomitant]
     Active Substance: CLONIDINE
  6. LIORESAL [Suspect]
     Active Substance: BACLOFEN
     Indication: MUSCLE SPASTICITY
     Dosage: 600 ?G, \DAY
  7. UNSPECIFIED MULTIVITAMIN [Concomitant]
  8. VYVANSE [Concomitant]
     Active Substance: LISDEXAMFETAMINE DIMESYLATE
  9. LIORESAL [Suspect]
     Active Substance: BACLOFEN
     Dosage: 371.5 ?G, \DAY
     Route: 037
     Dates: end: 20170906
  10. LIORESAL [Suspect]
     Active Substance: BACLOFEN
     Dosage: 100 ?G, \DAY
     Route: 037
     Dates: start: 20170906, end: 2017
  11. OXCARBAZEPINE. [Concomitant]
     Active Substance: OXCARBAZEPINE
  12. LIORESAL [Suspect]
     Active Substance: BACLOFEN
     Indication: CEREBRAL PALSY
     Dosage: 100 ?G, \DAY
     Route: 037
  13. GUANFACINE ER [Concomitant]
     Active Substance: GUANFACINE
  14. STRATTERA [Concomitant]
     Active Substance: ATOMOXETINE HYDROCHLORIDE

REACTIONS (8)
  - Device malfunction [Recovered/Resolved]
  - Pseudomeningocele [Recovered/Resolved]
  - Medical device site fibrosis [Recovered/Resolved]
  - Device occlusion [Recovered/Resolved]
  - Therapy non-responder [Not Recovered/Not Resolved]
  - Muscle spasticity [Recovered/Resolved]
  - Irritability [Recovered/Resolved]
  - Clonus [Recovered/Resolved]

NARRATIVE: CASE EVENT DATE: 2017
